FAERS Safety Report 25310919 (Version 5)
Quarter: 2025Q3

REPORT INFORMATION
  Report Type: Spontaneous
  Country: AR (occurrence: AR)
  Receive Date: 20250514
  Receipt Date: 20250909
  Transmission Date: 20251021
  Serious: Yes (Other)
  Sender: SANDOZ
  Company Number: AR-002147023-NVSC2025AR067641

PATIENT
  Age: 55 Year
  Sex: Female

DRUGS (10)
  1. FULVESTRANT [Suspect]
     Active Substance: FULVESTRANT
     Indication: Breast cancer stage IV
     Dosage: 2 DOSAGE FORM, QMO, 2 X 250 (500MG) (ON EACH SIDE OF THE BUTTOCKS)
     Route: 030
  2. FULVESTRANT [Suspect]
     Active Substance: FULVESTRANT
     Indication: Breast cancer female
     Route: 065
  3. FULVESTRANT [Suspect]
     Active Substance: FULVESTRANT
     Indication: Breast cancer metastatic
     Dosage: 500 MG, Q2W  (ONCE EVERY TWO WEEKS / EVERY  15 DAYS), STRENGTH 250 MG
     Route: 030
     Dates: start: 20250414
  4. KISQALI [Suspect]
     Active Substance: RIBOCICLIB SUCCINATE
     Indication: Breast cancer metastatic
     Dosage: 3 DF, QD (600 MG)
     Route: 048
     Dates: start: 20250414
  5. KISQALI [Suspect]
     Active Substance: RIBOCICLIB SUCCINATE
     Indication: Breast cancer female
  6. KISQALI [Suspect]
     Active Substance: RIBOCICLIB SUCCINATE
     Indication: Breast cancer stage IV
  7. AMOXICILLIN\CLAVULANIC ACID [Concomitant]
     Active Substance: AMOXICILLIN\CLAVULANIC ACID
     Indication: Product used for unknown indication
     Route: 065
  8. Buscapina [Concomitant]
     Indication: Product used for unknown indication
     Route: 065
  9. OMEPRAZOLE [Concomitant]
     Active Substance: OMEPRAZOLE
     Indication: Product used for unknown indication
     Route: 065
  10. METOCLOPRAMIDE HYDROCHLORIDE [Concomitant]
     Active Substance: METOCLOPRAMIDE HYDROCHLORIDE
     Indication: Product used for unknown indication
     Route: 065

REACTIONS (35)
  - Asphyxia [Unknown]
  - Syncope [Unknown]
  - Breast cancer metastatic [Unknown]
  - Malignant neoplasm progression [Unknown]
  - Asthenia [Recovered/Resolved]
  - Cough [Unknown]
  - Pneumonia [Not Recovered/Not Resolved]
  - Gastritis [Recovered/Resolved]
  - Drug intolerance [Unknown]
  - Visual impairment [Unknown]
  - Eye irritation [Unknown]
  - Panic reaction [Unknown]
  - Eye swelling [Unknown]
  - Eye allergy [Recovering/Resolving]
  - Eye pruritus [Unknown]
  - Gastrointestinal hypermotility [Recovered/Resolved]
  - Ocular hyperaemia [Unknown]
  - Skin exfoliation [Unknown]
  - Feeling cold [Recovered/Resolved]
  - Feeling abnormal [Unknown]
  - Eustachian tube dysfunction [Recovered/Resolved]
  - Tinnitus [Unknown]
  - Chest pain [Unknown]
  - Insomnia [Not Recovered/Not Resolved]
  - Dry eye [Unknown]
  - Anxiety [Unknown]
  - Abdominal discomfort [Unknown]
  - Diarrhoea [Recovered/Resolved]
  - Pain in extremity [Unknown]
  - Malaise [Recovering/Resolving]
  - Pyrexia [Unknown]
  - Rash [Unknown]
  - Nausea [Unknown]
  - Blood pressure decreased [Recovered/Resolved]
  - Product supply issue [Unknown]

NARRATIVE: CASE EVENT DATE: 20250401
